FAERS Safety Report 16274908 (Version 1)
Quarter: 2019Q2

REPORT INFORMATION
  Report Type: Spontaneous
  Country: US (occurrence: US)
  Receive Date: 20190401
  Receipt Date: 20190401
  Transmission Date: 20190711
  Serious: Yes (Hospitalization)
  Sender: FDA-Public Use
  Company Number: None

PATIENT

DRUGS (4)
  1. CETIRIZINE [Concomitant]
     Active Substance: CETIRIZINE HYDROCHLORIDE
  2. ACETAMINOPHEN. [Concomitant]
     Active Substance: ACETAMINOPHEN
  3. FERRLECIT [Suspect]
     Active Substance: SODIUM FERRIC GLUCONATE COMPLEX
     Indication: ANAEMIA
     Route: 042
     Dates: start: 20190322
  4. 0.9% NACL [Concomitant]
     Active Substance: SODIUM CHLORIDE

REACTIONS (6)
  - Nausea [None]
  - Vomiting [None]
  - Product substitution issue [None]
  - Laryngospasm [None]
  - Abdominal pain upper [None]
  - Rash [None]

NARRATIVE: CASE EVENT DATE: 20190322
